FAERS Safety Report 21459060 (Version 2)
Quarter: 2022Q4

REPORT INFORMATION
  Report Type: Report from Study
  Country: CO (occurrence: CO)
  Receive Date: 20221014
  Receipt Date: 20221018
  Transmission Date: 20230113
  Serious: Yes (Other)
  Sender: FDA-Public Use
  Company Number: CO-BRISTOL-MYERS SQUIBB COMPANY-2022-121160

PATIENT
  Age: 70 Year
  Sex: Male

DRUGS (1)
  1. ELIQUIS [Suspect]
     Active Substance: APIXABAN
     Indication: Product used for unknown indication
     Route: 048

REACTIONS (6)
  - Lung disorder [Unknown]
  - Atrial fibrillation [Unknown]
  - COVID-19 [Unknown]
  - Cardiac flutter [Unknown]
  - Cardiomegaly [Unknown]
  - Aortic dilatation [Unknown]
